FAERS Safety Report 6383414-2 (Version None)
Quarter: 2009Q4

REPORT INFORMATION
  Report Type: 
  Country: None (occurrence: None)
  Receive Date: 20091001
  Receipt Date: 20090918
  Transmission Date: 20100525
  Serious: Yes (Life-Threatening, Other)
  Sender: FDA-Public Use
  Company Number: GB-RANBAXY-2009RR-27656

PATIENT
  Age: 26 Year
  Sex: Female
  Weight: 74 kg

DRUGS (4)
  1. RANITIDINE [Suspect]
     Indication: PROPHYLAXIS
     Dosage: 50 MG, UNK
     Route: 042
     Dates: start: 20090806, end: 20090806
  2. FERROUS SULFATE TAB [Concomitant]
     Dosage: 200 MG, UNK
     Route: 048
  3. BUPIVACAINE [Concomitant]
     Indication: LABOUR PAIN
     Dosage: UNK
     Route: 008
     Dates: start: 20090806, end: 20090806
  4. FENTANYL [Concomitant]
     Indication: LABOUR PAIN
     Dosage: UNK
     Route: 008
     Dates: start: 20090806, end: 20090806

REACTIONS (6)
  - DYSPNOEA [None]
  - FLUSHING [None]
  - OEDEMA [None]
  - OROPHARYNGEAL SWELLING [None]
  - PARAESTHESIA [None]
  - SWELLING [None]
